FAERS Safety Report 5426427-7 (Version None)
Quarter: 2007Q3

REPORT INFORMATION
  Report Type: 
  Country: None (occurrence: None)
  Receive Date: 20070731
  Receipt Date: 20070419
  Transmission Date: 20080115
  Serious: No
  Sender: FDA-Public Use
  Company Number: US200704004547

PATIENT
  Age: 35 Year
  Sex: Female

DRUGS (2)
  1. BYETTA [Suspect]
     Dosage: 10 UG, SUBCUTANEOUS, 5 UG, SUBCUTANEOUS
     Route: 058
     Dates: start: 20070419, end: 20070419
  2. EXENATIDE [Concomitant]

REACTIONS (1)
  - INCORRECT DOSE ADMINISTERED [None]
